FAERS Safety Report 5038995-8 (Version None)
Quarter: 2006Q2

REPORT INFORMATION
  Report Type: 
  Country: None (occurrence: None)
  Receive Date: 20060601
  Receipt Date: 20060112
  Transmission Date: 20061013
  Serious: No
  Sender: FDA-Public Use
  Company Number: 2006PV007012

PATIENT
  Age: 54 Year
  Sex: Female

DRUGS (3)
  1. BYETTA [Suspect]
     Indication: DIABETES MELLITUS NON-INSULIN-DEPENDENT
     Dosage: 10 MCG;BID;SC
     Route: 058
     Dates: start: 20051117, end: 20051229
  2. BYETTA [Suspect]
     Indication: DIABETES MELLITUS NON-INSULIN-DEPENDENT
     Dosage: 10 MCG;BID;SC
     Route: 058
     Dates: start: 20060101
  3. KEFLEX [Concomitant]

REACTIONS (7)
  - ANOREXIA [None]
  - GASTROENTERITIS VIRAL [None]
  - NAUSEA [None]
  - PHARYNGITIS STREPTOCOCCAL [None]
  - STRESS [None]
  - VOMITING [None]
  - WEIGHT DECREASED [None]
